FAERS Safety Report 4986481-3 (Version None)
Quarter: 2006Q2

REPORT INFORMATION
  Report Type: 
  Country: None (occurrence: None)
  Receive Date: 20060428
  Receipt Date: 20060420
  Transmission Date: 20061013
  Serious: Yes (Hospitalization)
  Sender: FDA-Public Use
  Company Number: TR-ROCHE-444933

PATIENT
  Age: 27 Year
  Sex: Male
  Weight: 70 kg

DRUGS (7)
  1. ZENAPAX [Suspect]
     Dosage: A ONE OFF DOSE OF 2MG/KG GIVEN 24 HOURS PRE-TRANSPLANT.
     Route: 042
  2. ZENAPAX [Suspect]
     Dosage: 1MG/KG GIVEN ONCE EVERY 2 WEEKS FOR FOUR DOSES.
     Route: 042
  3. MYCOPHENOLATE MOFETIL [Suspect]
     Route: 065
     Dates: start: 20030921
  4. CYCLOSPORINE [Suspect]
     Route: 065
     Dates: start: 20030922
  5. CORTICOSTEROIDS [Suspect]
     Route: 065
  6. DILTIAZEM [Concomitant]
     Dates: start: 20030924
  7. LISINOPRIL [Concomitant]
     Dates: start: 20030927

REACTIONS (2)
  - BONE MARROW FAILURE [None]
  - CYTOMEGALOVIRUS INFECTION [None]
